FAERS Safety Report 15022352 (Version 3)
Quarter: 2019Q3

REPORT INFORMATION
  Report Type: Spontaneous
  Country: GB (occurrence: GB)
  Receive Date: 20180618
  Receipt Date: 20190805
  Transmission Date: 20191004
  Serious: Yes (Death, Hospitalization, Other)
  Sender: FDA-Public Use
  Company Number: GB-SA-2018SA149374

PATIENT
  Age: 42 Year
  Sex: Female

DRUGS (5)
  1. LEVOTHYROXINE. [Concomitant]
     Active Substance: LEVOTHYROXINE
     Indication: HYPOTHYROIDISM
     Dosage: 75 MG, QD
     Route: 065
  2. PREGABALIN. [Concomitant]
     Active Substance: PREGABALIN
     Dosage: 300 MG, BID
     Route: 065
  3. DULOXETINE. [Concomitant]
     Active Substance: DULOXETINE
     Dosage: 60 MG, QD
     Route: 065
  4. ALEMTUZUMAB [Suspect]
     Active Substance: ALEMTUZUMAB
     Indication: RELAPSING-REMITTING MULTIPLE SCLEROSIS
     Dosage: 12 MG, UNK
     Route: 041
     Dates: start: 201608, end: 201608
  5. METHYLPREDNISOLONE. [Suspect]
     Active Substance: METHYLPREDNISOLONE
     Dosage: 1000 MG, UNK
     Route: 042

REACTIONS (15)
  - Pyrexia [Fatal]
  - Blood pressure increased [Fatal]
  - Tachypnoea [Fatal]
  - Coma [Fatal]
  - Meningoencephalitis bacterial [Fatal]
  - Listeriosis [Fatal]
  - Malaise [Fatal]
  - Vomiting [Fatal]
  - Headache [Not Recovered/Not Resolved]
  - Unresponsive to stimuli [Fatal]
  - Brain death [Fatal]
  - C-reactive protein increased [Fatal]
  - Respiratory distress [Fatal]
  - Tachycardia [Fatal]
  - Diarrhoea [Fatal]

NARRATIVE: CASE EVENT DATE: 2016
